FAERS Safety Report 17860150 (Version 1)
Quarter: 2020Q2

REPORT INFORMATION
  Report Type: Spontaneous
  Country: SE (occurrence: SE)
  Receive Date: 20200604
  Receipt Date: 20200604
  Transmission Date: 20200714
  Serious: Yes (Other)
  Sender: FDA-Public Use
  Company Number: SE-TEVA-2020-SE-1243762

PATIENT
  Age: 24 Year
  Sex: Male

DRUGS (1)
  1. ISOTRETINOIN ACTAVIS [Suspect]
     Active Substance: ISOTRETINOIN
     Route: 048

REACTIONS (2)
  - Borderline personality disorder [Unknown]
  - Delirium [Unknown]
